FAERS Safety Report 5582675-7 (Version None)
Quarter: 2007Q4

REPORT INFORMATION
  Report Type: 
  Country: None (occurrence: None)
  Receive Date: 20071231
  Receipt Date: 20071219
  Transmission Date: 20080405
  Serious: Yes (Hospitalization)
  Sender: FDA-Public Use
  Company Number: OSCN-NO-0711S-0439

PATIENT
  Age: 56 Year
  Sex: Male

DRUGS (5)
  1. OMNISCAN [Suspect]
     Indication: BLADDER CANCER
     Dosage: 15 ML, SINGLE DOSE, I.V.
     Route: 042
     Dates: start: 20071019, end: 20071019
  2. CISPLATIN [Concomitant]
  3. DOXORUBICIN HYDROCHLORIDE (ADRIACIN) [Concomitant]
  4. METHOTREXATE [Concomitant]
  5. VINBLASTINE SULFATE [Concomitant]

REACTIONS (3)
  - BLOOD PRESSURE INCREASED [None]
  - DEPRESSED LEVEL OF CONSCIOUSNESS [None]
  - RESPIRATORY DISORDER [None]
